FAERS Safety Report 4684380-8 (Version None)
Quarter: 2005Q2

REPORT INFORMATION
  Report Type: 
  Country: None (occurrence: None)
  Receive Date: 20050531
  Receipt Date: 20040929
  Transmission Date: 20051028
  Serious: Yes (Hospitalization)
  Sender: FDA-Public Use
  Company Number: 200414513US

PATIENT
  Age: 79 Year
  Sex: Female
  Weight: 40 kg

DRUGS (1)
  1. LOVENOX [Suspect]
     Indication: THROMBOSIS PROPHYLAXIS
     Dosage: 40 MG QD SC
     Route: 058
     Dates: start: 20040520, end: 20040524

REACTIONS (3)
  - ABDOMINAL PAIN [None]
  - HAEMATOMA [None]
  - HAEMORRHAGE [None]
